FAERS Safety Report 17744200 (Version 4)
Quarter: 2025Q2

REPORT INFORMATION
  Report Type: Spontaneous
  Country: PL (occurrence: PL)
  Receive Date: 20200505
  Receipt Date: 20250401
  Transmission Date: 20250717
  Serious: Yes (Death, Disabling, Other)
  Sender: ACCORD
  Company Number: None

PATIENT
  Age: 61 Year
  Sex: Male

DRUGS (52)
  1. BICALUTAMIDE [Suspect]
     Active Substance: BICALUTAMIDE
     Indication: Prostate cancer
     Dosage: 50 MILLIGRAM, QD
     Dates: start: 201603
  2. DOCETAXEL [Suspect]
     Active Substance: DOCETAXEL
     Indication: Chemotherapy
     Route: 065
  3. ACETAMINOPHEN [Suspect]
     Active Substance: ACETAMINOPHEN
     Indication: Pain
     Route: 065
  4. LEUPROLIDE ACETATE [Suspect]
     Active Substance: LEUPROLIDE ACETATE
     Indication: Prostate cancer
     Dosage: UNK, Q3MO, ONCE IN 3 MONTHS
     Route: 065
  5. TRAMADOL [Suspect]
     Active Substance: TRAMADOL
     Indication: Pain
     Route: 065
  6. FENTANYL [Suspect]
     Active Substance: FENTANYL
     Indication: Cancer pain
     Dosage: 50 MICROGRAM, Q1HR
     Route: 065
  7. DICLOFENAC [Suspect]
     Active Substance: DICLOFENAC
     Indication: Pain
     Dosage: 100 MG, Q12H (100 MG, BID)
     Route: 065
     Dates: start: 201401
  8. GABAPENTIN [Suspect]
     Active Substance: GABAPENTIN
     Indication: Pain
     Dates: start: 201603, end: 2016
  9. ACETAMINOPHEN [Suspect]
     Active Substance: ACETAMINOPHEN
     Indication: Pain
  10. DENOSUMAB [Suspect]
     Active Substance: DENOSUMAB
     Indication: Prostate cancer
     Dates: start: 201603
  11. KETOPROFEN [Suspect]
     Active Substance: KETOPROFEN
     Indication: Pain
     Dosage: 100 MILLIGRAM, BID
     Dates: start: 201603
  12. MORPHINE SULFATE [Suspect]
     Active Substance: MORPHINE SULFATE
     Indication: Pain
     Dates: start: 201603
  13. ACETAMINOPHEN\TRAMADOL [Suspect]
     Active Substance: ACETAMINOPHEN\TRAMADOL
     Indication: Analgesic therapy
  14. LEUPROLIDE ACETATE [Suspect]
     Active Substance: LEUPROLIDE ACETATE
     Indication: Hormone therapy
  15. IRON [Concomitant]
     Active Substance: IRON
     Indication: Product used for unknown indication
  16. METAMIZOLE [Concomitant]
     Active Substance: METAMIZOLE
     Indication: Product used for unknown indication
  17. TAPENTADOL [Concomitant]
     Active Substance: TAPENTADOL
     Indication: Polyneuropathy
  18. PREGABALIN [Concomitant]
     Active Substance: PREGABALIN
     Indication: Product used for unknown indication
     Dosage: 0.15 GRAM, QD
  19. ABIRATERONE [Concomitant]
     Active Substance: ABIRATERONE
     Indication: Product used for unknown indication
     Dates: start: 201403
  20. VITAMIN D3 [Concomitant]
     Active Substance: CHOLECALCIFEROL
     Indication: Product used for unknown indication
     Dosage: 4000 INTERNATIONAL UNIT, QD
     Dates: start: 201603
  21. NIMESULIDE [Concomitant]
     Active Substance: NIMESULIDE
     Indication: Product used for unknown indication
     Dosage: UNK, 1-0-1
  22. MORPHINE [Concomitant]
     Active Substance: MORPHINE
     Indication: Pain
  23. DEXKETOPROFEN TROMETAMOL [Concomitant]
     Active Substance: DEXKETOPROFEN TROMETAMOL
     Indication: Product used for unknown indication
  24. KETOPROFEN [Suspect]
     Active Substance: KETOPROFEN
     Indication: Pain
     Dosage: 100 MILLIGRAM, BID
     Dates: start: 201605
  25. LEUPROLIDE ACETATE [Suspect]
     Active Substance: LEUPROLIDE ACETATE
     Indication: Hormone therapy
  26. MORPHINE [Concomitant]
     Active Substance: MORPHINE
     Indication: Cancer pain
     Dates: start: 201603
  27. ACETAMINOPHEN\TRAMADOL [Suspect]
     Active Substance: ACETAMINOPHEN\TRAMADOL
     Indication: Analgesic therapy
     Dates: start: 201401
  28. PREGABALIN [Concomitant]
     Active Substance: PREGABALIN
     Indication: Product used for unknown indication
     Dosage: 0.075 G, 2X PER DAY, (1-0-1)
  29. GABAPENTIN [Suspect]
     Active Substance: GABAPENTIN
     Indication: Pain
     Dates: start: 201603, end: 2016
  30. TAPENTADOL [Concomitant]
     Active Substance: TAPENTADOL
     Indication: Polyneuropathy
  31. TAPENTADOL [Concomitant]
     Active Substance: TAPENTADOL
     Indication: Polyneuropathy
  32. TAPENTADOL [Concomitant]
     Active Substance: TAPENTADOL
     Indication: Polyneuropathy
     Dosage: 0.1 MG, QD (0.05 G, 2X PER DAY (SLOW-RELEASE)
  33. PREGABALIN [Concomitant]
     Active Substance: PREGABALIN
     Indication: Product used for unknown indication
     Dosage: 0.15 GRAM, BID
  34. FENTANYL [Suspect]
     Active Substance: FENTANYL
     Indication: Cancer pain
     Dosage: 50 MICROGRAM, Q72H
     Route: 065
     Dates: start: 2016, end: 2016
  35. MORPHINE [Concomitant]
     Active Substance: MORPHINE
     Indication: Pain
     Dosage: 0.02 GRAM, QID
     Dates: start: 201603
  36. LEUPROLIDE ACETATE [Suspect]
     Active Substance: LEUPROLIDE ACETATE
     Indication: Hormone therapy
     Dosage: UNK, EVERY SIX MONTHS
     Route: 065
  37. FENTANYL [Suspect]
     Active Substance: FENTANYL
     Indication: Cancer pain
     Dosage: 50 MICROGRAM, Q1HR, EVERY 3 DAYS
     Route: 065
  38. FENTANYL [Suspect]
     Active Substance: FENTANYL
     Indication: Cancer pain
     Dosage: 50 MICROGRAM, Q1HR
     Route: 065
     Dates: start: 2016, end: 2016
  39. GABAPENTIN [Suspect]
     Active Substance: GABAPENTIN
     Indication: Pain
     Dosage: 900 MILLIGRAM
  40. GABAPENTIN [Suspect]
     Active Substance: GABAPENTIN
     Indication: Pain
  41. GABAPENTIN [Suspect]
     Active Substance: GABAPENTIN
     Indication: Pain
  42. FENTANYL [Suspect]
     Active Substance: FENTANYL
     Indication: Cancer pain
     Dosage: 50 MICROGRAM, Q1HR
     Route: 065
  43. FENTANYL [Suspect]
     Active Substance: FENTANYL
     Indication: Cancer pain
     Dosage: 50 MICROGRAM
     Route: 065
     Dates: start: 201603, end: 2016
  44. FENTANYL [Suspect]
     Active Substance: FENTANYL
     Indication: Cancer pain
     Dosage: 200 MICROGRAM, Q1HR
     Route: 065
  45. FENTANYL [Suspect]
     Active Substance: FENTANYL
     Indication: Cancer pain
     Dosage: 200 MICROGRAM
     Route: 065
  46. FENTANYL [Suspect]
     Active Substance: FENTANYL
     Indication: Cancer pain
     Route: 065
  47. FENTANYL [Suspect]
     Active Substance: FENTANYL
     Indication: Cancer pain
     Route: 065
  48. KETOPROFEN [Suspect]
     Active Substance: KETOPROFEN
     Indication: Pain
     Dosage: 200 MILLIGRAM, QD
  49. KETOPROFEN [Suspect]
     Active Substance: KETOPROFEN
     Indication: Pain
     Dosage: 100 MILLIGRAM, BID -MAR-2016
     Dates: start: 201603
  50. ACETAMINOPHEN\TRAMADOL [Suspect]
     Active Substance: ACETAMINOPHEN\TRAMADOL
     Indication: Analgesic therapy
  51. FENTANYL [Suspect]
     Active Substance: FENTANYL
     Indication: Cancer pain
  52. GABAPENTIN [Suspect]
     Active Substance: GABAPENTIN
     Indication: Pain
     Dates: start: 201403

REACTIONS (19)
  - Malignant neoplasm progression [Unknown]
  - Polyneuropathy [Fatal]
  - Chronic kidney disease [Fatal]
  - Prostate cancer [Unknown]
  - Metastases to lung [Unknown]
  - Confusional state [Fatal]
  - Constipation [Fatal]
  - Dermatitis allergic [Fatal]
  - Allodynia [Fatal]
  - Quality of life decreased [Fatal]
  - Polyneuropathy in malignant disease [Fatal]
  - Drug dependence [Unknown]
  - Anaemia [Unknown]
  - Metastases to bone [Unknown]
  - Hyperaesthesia [Recovered/Resolved]
  - Toxicity to various agents [Recovered/Resolved]
  - Decreased appetite [Fatal]
  - Neuropathy peripheral [Not Recovered/Not Resolved]
  - Pain [Unknown]

NARRATIVE: CASE EVENT DATE: 20160101
